FAERS Safety Report 7456222-9 (Version None)
Quarter: 2011Q1

REPORT INFORMATION
  Report Type: 
  Country: None (occurrence: None)
  Receive Date: 20110302
  Receipt Date: 20110105
  Transmission Date: 20110831
  Serious: No
  Sender: FDA-Public Use
  Company Number: 024901

PATIENT
  Sex: Female
  Weight: 81.7 kg

DRUGS (12)
  1. FOLIC ACID [Concomitant]
  2. CELEBREX [Concomitant]
  3. PREVACID [Concomitant]
  4. VITAMIN B-12 [Concomitant]
  5. PENTASA [Concomitant]
  6. IMURAN [Concomitant]
  7. HYDROCODONE BITARTRATE [Concomitant]
  8. METHADONE HCL [Concomitant]
  9. CLARITIN [Concomitant]
  10. DIFLUCAN [Concomitant]
  11. SINGULAIR [Concomitant]
  12. CIMZIA [Suspect]
     Indication: CROHN'S DISEASE
     Dosage: 400 MG 1X/4 WEEKS SUBCUTANEOUS
     Route: 058
     Dates: start: 20090401

REACTIONS (2)
  - INJECTION SITE PAIN [None]
  - INJECTION SITE HAEMATOMA [None]
